FAERS Safety Report 10206704 (Version 1)
Quarter: 2014Q2

REPORT INFORMATION
  Report Type: Spontaneous
  Country: US (occurrence: None)
  Receive Date: 20140528
  Receipt Date: 20140528
  Transmission Date: 20141212
  Serious: Yes (Other)
  Sender: FDA-Public Use
  Company Number: None

PATIENT
  Age: 24 Year
  Sex: Female

DRUGS (1)
  1. APIDRA 10 ML [Suspect]
     Indication: BLOOD GLUCOSE INCREASED
     Dates: start: 20140513, end: 20140513

REACTIONS (4)
  - Blood glucose abnormal [None]
  - Endocrine test abnormal [None]
  - Liquid product physical issue [None]
  - Product quality issue [None]
